FAERS Safety Report 6773915-7 (Version None)
Quarter: 2010Q2

REPORT INFORMATION
  Report Type: 
  Country: None (occurrence: None)
  Receive Date: 20100615
  Receipt Date: 20100615
  Transmission Date: 20101027
  Serious: No
  Sender: FDA-Public Use
  Company Number: None

PATIENT
  Sex: Female
  Weight: 76.6579 kg

DRUGS (2)
  1. WELCHOL [Suspect]
     Indication: ABDOMINAL DISTENSION
     Dosage: 1 TABLET 2 TIMES A DAY AFTER RELIEF AT 530 NO MORE PILLS
     Dates: start: 20100520
  2. WELCHOL [Suspect]
     Indication: FLATULENCE
     Dosage: 1 TABLET 2 TIMES A DAY AFTER RELIEF AT 530 NO MORE PILLS
     Dates: start: 20100520

REACTIONS (8)
  - ABDOMINAL DISTENSION [None]
  - CONSTIPATION [None]
  - DIARRHOEA [None]
  - DYSPNOEA [None]
  - FEELING ABNORMAL [None]
  - FLATULENCE [None]
  - NAUSEA [None]
  - PAIN [None]
